FAERS Safety Report 7595931-8 (Version None)
Quarter: 2011Q3

REPORT INFORMATION
  Report Type: 
  Country: None (occurrence: None)
  Receive Date: 20110707
  Receipt Date: 20110630
  Transmission Date: 20111222
  Serious: Yes (Hospitalization, Other)
  Sender: FDA-Public Use
  Company Number: ZA-ABBOTT-11P-143-0835590-00

PATIENT
  Age: 13 Year
  Sex: Female

DRUGS (6)
  1. EMTRICITABINE [Suspect]
     Route: 048
     Dates: start: 20101220
  2. EFAVIRENZ [Concomitant]
     Indication: HIV INFECTION
     Route: 048
     Dates: start: 20101220
  3. EMTRICITABINE [Suspect]
     Indication: HIV INFECTION
     Route: 048
     Dates: start: 20030529, end: 20101208
  4. RITONAVIR [Suspect]
     Indication: HIV INFECTION
     Route: 048
     Dates: start: 20101202, end: 20101208
  5. ABACAVIR [Concomitant]
     Indication: HIV INFECTION
     Route: 048
  6. KALETRA [Concomitant]
     Indication: HIV INFECTION
     Route: 048
     Dates: start: 20030529, end: 20101208

REACTIONS (4)
  - VOMITING [None]
  - ABDOMINAL PAIN [None]
  - WEIGHT DECREASED [None]
  - HEPATOMEGALY [None]
